FAERS Safety Report 23304003 (Version 2)
Quarter: 2024Q1

REPORT INFORMATION
  Report Type: Spontaneous
  Country: JP (occurrence: JP)
  Receive Date: 20231215
  Receipt Date: 20240216
  Transmission Date: 20240410
  Serious: Yes (Death)
  Sender: FDA-Public Use
  Company Number: JP-BAYER-2023A175340

PATIENT
  Age: 8 Decade
  Sex: Male

DRUGS (4)
  1. NUBEQA [Suspect]
     Active Substance: DAROLUTAMIDE
     Indication: Prostate cancer metastatic
     Dosage: UNK
     Dates: start: 20231108, end: 20231113
  2. NUBEQA [Suspect]
     Active Substance: DAROLUTAMIDE
     Indication: Metastases to bone
  3. DOCETAXEL [Concomitant]
     Active Substance: DOCETAXEL\DOCETAXEL ANHYDROUS
     Indication: Prostate cancer metastatic
     Dosage: UNK
     Dates: start: 20231108
  4. DOCETAXEL [Concomitant]
     Active Substance: DOCETAXEL\DOCETAXEL ANHYDROUS
     Indication: Metastases to bone

REACTIONS (5)
  - Prostate cancer [Fatal]
  - Metastases to spine [Fatal]
  - Metastases to spine [Fatal]
  - Metastases to spleen [Fatal]
  - Bladder cancer [Fatal]

NARRATIVE: CASE EVENT DATE: 20231115
